FAERS Safety Report 18915209 (Version 1)
Quarter: 2021Q1

REPORT INFORMATION
  Report Type: Spontaneous
  Country: FR (occurrence: FR)
  Receive Date: 20210219
  Receipt Date: 20210219
  Transmission Date: 20210420
  Serious: Yes (Hospitalization)
  Sender: FDA-Public Use
  Company Number: FR-ACCORD-217542

PATIENT
  Age: 67 Year
  Sex: Male

DRUGS (3)
  1. AUGMENTIN [Suspect]
     Active Substance: AMOXICILLIN\CLAVULANATE POTASSIUM
     Indication: INFECTION
     Route: 048
     Dates: start: 20201216
  2. APIXABAN [Suspect]
     Active Substance: APIXABAN
     Indication: ATRIAL FIBRILLATION
     Route: 048
     Dates: start: 20201219
  3. ACETYLSALICYLIC ACID [Suspect]
     Active Substance: ASPIRIN
     Indication: PROPHYLAXIS
     Route: 048
     Dates: start: 20201216, end: 20201223

REACTIONS (1)
  - Vascular purpura [Not Recovered/Not Resolved]

NARRATIVE: CASE EVENT DATE: 20201222
